FAERS Safety Report 8643897 (Version 3)
Quarter: 2012Q4

REPORT INFORMATION
  Report Type: 
  Country: DE (occurrence: IT)
  Receive Date: 20120629
  Receipt Date: 20120918
  Transmission Date: 20130627
  Serious: Yes (Other)
  Sender: FDA-Public Use
  Company Number: IT-BRISTOL-MYERS SQUIBB COMPANY-16713125

PATIENT
  Age: 70 Year
  Sex: Male

DRUGS (3)
  1. ERBITUX SOLN FOR INF [Suspect]
     Indication: HEAD AND NECK CANCER
     Route: 042
     Dates: start: 20111215, end: 20120305
  2. CARBOPLATINE TEVA [Concomitant]
     Indication: HEAD AND NECK CANCER
     Route: 042
     Dates: start: 20111124, end: 20120217
  3. FLUOROURACIL [Concomitant]
     Indication: HEAD AND NECK CANCER
     Dosage: 96 hrs continous infusion(7060 mg)
     Route: 042
     Dates: start: 20111124, end: 20120105

REACTIONS (1)
  - Leukocytoclastic vasculitis [Recovering/Resolving]
